FAERS Safety Report 4733406-1 (Version None)
Quarter: 2005Q3

REPORT INFORMATION
  Report Type: 
  Country: None (occurrence: None)
  Receive Date: 20050725
  Receipt Date: 20041112
  Transmission Date: 20060218
  Serious: Yes (Other)
  Sender: FDA-Public Use
  Company Number: USA-2003-0005851

PATIENT
  Sex: Male

DRUGS (22)
  1. MS CONTIN [Suspect]
     Indication: PAIN
     Dosage: 100 MG, Q8H, ORAL
     Route: 048
     Dates: start: 20010813
  2. MSIR CAPSULES 30 MG (MORPHINE SULFATE) [Suspect]
     Indication: PAIN
     Dosage: 30 MG, TID PRN, ORAL
     Route: 048
     Dates: start: 20010813
  3. OXYCONTIN [Concomitant]
  4. PROZAC [Concomitant]
  5. KLONOPIN [Concomitant]
  6. VISTARIL [Concomitant]
  7. LIDOCAINE [Concomitant]
  8. ACTIQ [Concomitant]
  9. DIAZEPAM [Concomitant]
  10. SOMA [Concomitant]
  11. LACTULOSE [Concomitant]
  12. TRAZODONE [Concomitant]
  13. WELLBUTRIN [Concomitant]
  14. BEXTRA [Concomitant]
  15. NEURONTIN [Concomitant]
  16. DOSTINEX [Concomitant]
  17. TESTOSTERONE [Concomitant]
  18. FOSAMAX [Concomitant]
  19. MIACALCIN [Concomitant]
  20. RHINOCORT [Concomitant]
  21. PREVACID [Concomitant]
  22. TEGASEROD [Concomitant]

REACTIONS (7)
  - BREATHING-RELATED SLEEP DISORDER [None]
  - DRUG ABUSER [None]
  - DRUG WITHDRAWAL SYNDROME [None]
  - NAUSEA [None]
  - PAIN [None]
  - SLEEP APNOEA SYNDROME [None]
  - VOMITING [None]
